FAERS Safety Report 17703575 (Version 1)
Quarter: 2020Q2

REPORT INFORMATION
  Report Type: Spontaneous
  Country: US (occurrence: US)
  Receive Date: 20200424
  Receipt Date: 20200424
  Transmission Date: 20200714
  Serious: Yes (Life-Threatening, Hospitalization, Other)
  Sender: FDA-Public Use
  Company Number: US-LUPIN PHARMACEUTICALS INC.-2020-01820

PATIENT
  Age: 16 Year
  Sex: Female

DRUGS (2)
  1. SERTRALINE [Suspect]
     Active Substance: SERTRALINE HYDROCHLORIDE
     Indication: PRODUCT USED FOR UNKNOWN INDICATION
     Dosage: 4250 MILLIGRAM (INTENTIONAL OVERDOSE)
     Route: 048
  2. SERTRALINE [Suspect]
     Active Substance: SERTRALINE HYDROCHLORIDE
     Dosage: 100 MILLIGRAM, QD
     Route: 048

REACTIONS (6)
  - Delirium [Recovering/Resolving]
  - Intentional overdose [Unknown]
  - Blood creatine phosphokinase increased [Recovering/Resolving]
  - Hallucination, visual [Recovering/Resolving]
  - Suicide attempt [Unknown]
  - Serotonin syndrome [Recovering/Resolving]
